FAERS Safety Report 8763772 (Version 24)
Quarter: 2016Q2

REPORT INFORMATION
  Report Type: Report from Study
  Country: CA (occurrence: CA)
  Receive Date: 20120831
  Receipt Date: 20160607
  Transmission Date: 20160815
  Serious: Yes (Hospitalization, Other)
  Sender: FDA-Public Use
  Company Number: PHHY2012CA075183

PATIENT
  Age: 73 Year
  Sex: Female

DRUGS (2)
  1. SANDOSTATIN LAR DEPOT [Suspect]
     Active Substance: OCTREOTIDE ACETATE
     Dosage: UNK
     Route: 030
     Dates: start: 20160310
  2. SANDOSTATIN LAR DEPOT [Suspect]
     Active Substance: OCTREOTIDE ACETATE
     Indication: SMALL INTESTINE CARCINOMA
     Dosage: 20 MG, QMO (ONCE A MONTH)
     Route: 030
     Dates: start: 20100813

REACTIONS (21)
  - Head discomfort [Unknown]
  - Foot fracture [Unknown]
  - Pneumonia [Unknown]
  - Cough [Not Recovered/Not Resolved]
  - Injection site haemorrhage [Unknown]
  - Ankle fracture [Recovering/Resolving]
  - Fatigue [Recovering/Resolving]
  - Pulmonary congestion [Unknown]
  - Balance disorder [Unknown]
  - Influenza like illness [Unknown]
  - Nasopharyngitis [Unknown]
  - Wheezing [Unknown]
  - Skin lesion [Unknown]
  - Pyrexia [Recovered/Resolved]
  - Post procedural haemorrhage [Unknown]
  - Needle issue [Unknown]
  - Arthritis [Unknown]
  - Fracture [Unknown]
  - Fall [Unknown]
  - Chills [Unknown]
  - Blood pressure increased [Unknown]

NARRATIVE: CASE EVENT DATE: 201212
